FAERS Safety Report 14770251 (Version 2)
Quarter: 2018Q2

REPORT INFORMATION
  Report Type: Report from Study
  Country: US (occurrence: US)
  Receive Date: 20180417
  Receipt Date: 20180418
  Transmission Date: 20180711
  Serious: Yes (Hospitalization, Other)
  Sender: FDA-Public Use
  Company Number: US-SHIRE-US201812770

PATIENT
  Age: 75 Year
  Sex: Male

DRUGS (1)
  1. XIIDRA [Suspect]
     Active Substance: LIFITEGRAST
     Indication: PRODUCT USED FOR UNKNOWN INDICATION
     Route: 047

REACTIONS (2)
  - Pneumonia [Unknown]
  - Chest pain [Unknown]

NARRATIVE: CASE EVENT DATE: 20180402
